FAERS Safety Report 24178475 (Version 1)
Quarter: 2024Q3

REPORT INFORMATION
  Report Type: Spontaneous
  Country: US (occurrence: US)
  Receive Date: 20240806
  Receipt Date: 20240806
  Transmission Date: 20241017
  Serious: Yes (Other)
  Sender: Long Grove Pharmaceuticals
  Company Number: US-Long Grove-000062

PATIENT

DRUGS (1)
  1. FLUORESCEIN [Suspect]
     Active Substance: FLUORESCEIN
     Indication: Product used for unknown indication
     Dosage: STRENGTH: 100 MG /ML (5ML)
     Route: 037

REACTIONS (2)
  - Meningitis bacterial [Unknown]
  - Incorrect route of product administration [Unknown]
